FAERS Safety Report 20088840 (Version 1)
Quarter: 2021Q4

REPORT INFORMATION
  Report Type: Spontaneous
  Country: US (occurrence: US)
  Receive Date: 20211119
  Receipt Date: 20211119
  Transmission Date: 20220303
  Serious: No
  Sender: FDA-Public Use
  Company Number: US-ALKEM LABORATORIES LIMITED-US-ALKEM-2020-08362

PATIENT
  Age: 55 Year
  Sex: Female

DRUGS (2)
  1. MINOCYCLINE [Suspect]
     Active Substance: MINOCYCLINE HYDROCHLORIDE
     Indication: Bacteraemia
     Dosage: UNK
     Route: 048
  2. MEROPENEM [Suspect]
     Active Substance: MEROPENEM
     Indication: Bacteraemia
     Dosage: UNK
     Route: 042

REACTIONS (3)
  - Trichoglossia [Recovered/Resolved]
  - Nausea [Unknown]
  - Taste disorder [Unknown]
